FAERS Safety Report 8766533 (Version 3)
Quarter: 2012Q4

REPORT INFORMATION
  Report Type: 
  Country: IT (occurrence: IT)
  Receive Date: 20120904
  Receipt Date: 20121026
  Transmission Date: 20130627
  Serious: Yes (Death, Other)
  Sender: FDA-Public Use
  Company Number: IT-ASTRAZENECA-2012SE65980

PATIENT
  Age: 30921 Day
  Sex: Male

DRUGS (9)
  1. SEROQUEL [Suspect]
     Indication: PSYCHOTIC DISORDER
     Route: 048
     Dates: start: 20060302, end: 20120228
  2. SEROQUEL [Suspect]
     Indication: PSYCHOTIC DISORDER
     Route: 048
  3. SEROQUEL [Suspect]
     Indication: PSYCHOTIC DISORDER
     Route: 048
     Dates: start: 201205
  4. MIRTAZAPINA BLUEFISH [Interacting]
     Indication: DEPRESSION
     Route: 048
     Dates: start: 20120101, end: 20120415
  5. MIRTAZAPINA BLUEFISH [Interacting]
     Indication: DEPRESSION
     Route: 048
  6. TALOFEN [Interacting]
     Indication: SCHIZOPHRENIA
     Route: 048
     Dates: start: 20110101, end: 20120415
  7. HALCION [Concomitant]
  8. MITTOVAL [Concomitant]
  9. FLUPID [Concomitant]

REACTIONS (5)
  - Drug interaction [Unknown]
  - Electrocardiogram QT prolonged [Recovered/Resolved]
  - Bronchopneumonia [Fatal]
  - Anaemia [Unknown]
  - Hypotension [Unknown]
